FAERS Safety Report 23674416 (Version 2)
Quarter: 2024Q2

REPORT INFORMATION
  Report Type: Spontaneous
  Country: IN (occurrence: IN)
  Receive Date: 20240326
  Receipt Date: 20240405
  Transmission Date: 20240715
  Serious: Yes (Other)
  Sender: FDA-Public Use
  Company Number: IN-002147023-NVSC2024US063383

PATIENT
  Age: 78 Year
  Sex: Male

DRUGS (11)
  1. PAZOPANIB [Suspect]
     Active Substance: PAZOPANIB
     Indication: Gallbladder cancer metastatic
     Dosage: UNK
     Route: 048
     Dates: start: 20180620, end: 20190918
  2. PAZOPANIB [Suspect]
     Active Substance: PAZOPANIB
     Indication: Gene mutation
  3. GEMCITABINE [Suspect]
     Active Substance: GEMCITABINE
     Indication: Gallbladder cancer metastatic
     Dosage: ON DAY 1 AND 8 ON  A 21-DAY CYCLE.
     Route: 042
     Dates: start: 20161006, end: 20161202
  4. CISPLATIN [Suspect]
     Active Substance: CISPLATIN
     Indication: Gallbladder cancer metastatic
     Dosage: ON DAY 1 ON  A 21-DAY CYCLE.
     Route: 042
     Dates: start: 20161006, end: 20161202
  5. FLUOROURACIL [Suspect]
     Active Substance: FLUOROURACIL
     Indication: Gallbladder cancer metastatic
     Dosage: ON DAY 1
     Route: 042
     Dates: start: 20161216
  6. FLUOROURACIL [Suspect]
     Active Substance: FLUOROURACIL
     Dosage: FOR 2 DAYS CONTINUOUS IV INFUSION
     Route: 042
     Dates: start: 201612, end: 20180521
  7. LEUCOVORIN [Suspect]
     Active Substance: LEUCOVORIN\LEUCOVORIN CALCIUM
     Indication: Gallbladder cancer metastatic
     Dosage: ON DAY 1
     Route: 042
     Dates: start: 20161216, end: 20180521
  8. OXALIPLATIN [Suspect]
     Active Substance: OXALIPLATIN
     Indication: Gallbladder cancer metastatic
     Dosage: ON DAY 1
     Route: 042
     Dates: start: 20161216, end: 20180521
  9. ERDAFITINIB [Suspect]
     Active Substance: ERDAFITINIB
     Indication: Gallbladder cancer
     Dosage: UNK
     Route: 065
     Dates: start: 20200221
  10. ERDAFITINIB [Suspect]
     Active Substance: ERDAFITINIB
     Indication: Gene mutation
     Dosage: ON DAY 15
     Route: 065
     Dates: start: 202002, end: 20210204
  11. APIXABAN [Concomitant]
     Active Substance: APIXABAN
     Indication: Portal vein thrombosis
     Dosage: UNK
     Route: 065

REACTIONS (5)
  - Off label use [Unknown]
  - Drug ineffective [Unknown]
  - Drug resistance [Unknown]
  - Fatigue [Unknown]
  - Paronychia [Unknown]
